FAERS Safety Report 18322064 (Version 1)
Quarter: 2020Q3

REPORT INFORMATION
  Report Type: Report from Study
  Country: US (occurrence: US)
  Receive Date: 20200929
  Receipt Date: 20200929
  Transmission Date: 20201103
  Serious: Yes (Other)
  Sender: FDA-Public Use
  Company Number: US-GILEAD-2020-0496619

PATIENT
  Age: 28 Year
  Sex: Female

DRUGS (1)
  1. AZTREONAM LYSINE [Suspect]
     Active Substance: AZTREONAM LYSINE
     Indication: CYSTIC FIBROSIS
     Dosage: 75 MG, TID, VIA ALTERA NEBULIZER, FOR 28 DAYS ON, THEN REPEAT EVERY MONTH
     Route: 065

REACTIONS (1)
  - Cystic fibrosis [Unknown]
